FAERS Safety Report 4824302-X (Version None)
Quarter: 2005Q4

REPORT INFORMATION
  Report Type: 
  Country: None (occurrence: None)
  Receive Date: 20051109
  Receipt Date: 20051104
  Transmission Date: 20060501
  Serious: Yes (Death, Hospitalization)
  Sender: FDA-Public Use
  Company Number: US-MERCK-0511USA00782

PATIENT
  Sex: Female

DRUGS (2)
  1. INVANZ [Suspect]
     Indication: SKIN INFECTION
     Route: 042
  2. [THERAPY UNSPECIFIED] [Concomitant]
     Route: 065

REACTIONS (1)
  - HEPATIC FAILURE [None]
